FAERS Safety Report 4805489-1 (Version None)
Quarter: 2005Q4

REPORT INFORMATION
  Report Type: 
  Country: None (occurrence: None)
  Receive Date: 20051018
  Receipt Date: 20051007
  Transmission Date: 20060501
  Serious: Yes (Other)
  Sender: FDA-Public Use
  Company Number: GBR-2005-0001914

PATIENT
  Sex: Female

DRUGS (3)
  1. BUPRENORPHINE HYDROCHLORIDE [Suspect]
     Indication: PAIN
     Dosage: 35 MCG, Q1H, TRANSDERMAL
     Route: 062
     Dates: start: 20040114, end: 20040211
  2. ANALGESICS [Concomitant]
  3. ANTIEMETICS AND ANTINAUSEANTS [Concomitant]

REACTIONS (7)
  - CARDIAC FIBRILLATION [None]
  - CONDITION AGGRAVATED [None]
  - CORONARY ARTERY DISEASE [None]
  - DEPRESSION [None]
  - SEDATION [None]
  - SOMNOLENCE [None]
  - TACHYCARDIA [None]
